FAERS Safety Report 8456675-3 (Version None)
Quarter: 2012Q2

REPORT INFORMATION
  Report Type: 
  Country: None (occurrence: None)
  Receive Date: 20120621
  Receipt Date: 20120618
  Transmission Date: 20120825
  Serious: Yes (Other)
  Sender: FDA-Public Use
  Company Number: US-TEVA-344134USA

PATIENT
  Age: 32 Year
  Sex: Female

DRUGS (10)
  1. ALBUTEROL [Suspect]
     Indication: ASTHMA
     Dosage: AS NEEDED
     Route: 065
  2. MONTELUKAST [Concomitant]
     Indication: ASTHMA
     Dosage: 10MG DAILY
     Route: 065
  3. METHYLPREDNISOLONE [Concomitant]
     Indication: ASTHMA
     Dosage: 125MG
     Route: 042
     Dates: start: 20120101
  4. GALENIC /FLUTICASONE/SALMETEROL/ [Suspect]
     Indication: ASTHMA
     Dosage: SALMETEROL 50?G/FLUTICASONE PROPIONATE 500?G INHALER
  5. TERBUTALINE [Suspect]
     Indication: ASTHMA
     Dosage: 0.25MG, TWO DOSES
     Route: 058
     Dates: start: 20120101
  6. MAGNESIUM SULFATE [Concomitant]
     Indication: ASTHMA
     Dosage: 2G
     Route: 042
     Dates: start: 20120101
  7. IPRATROPIUM BROMIDE [Concomitant]
     Indication: ASTHMA
     Dosage: SALBUTAMOL WITH IPRATROPIUM BROMIDE 3 TIMES
     Route: 065
     Dates: start: 20120101
  8. ALBUTEROL [Suspect]
     Dosage: INHALER, AT LEAST 5 TIMES IN ONE DAY WITH TWO OR MORE PUFFS EACH TIME (90 MICROG/PUFF)
     Route: 055
  9. ALBUTEROL [Suspect]
     Dosage: NEBULISER, 2.5MG; GIVEN IN AMBULANCE, UPON ARRIVAL, AND THEN THREE TIMES IN SECOND HOUR IN ED
     Route: 055
  10. ALBUTEROL [Suspect]
     Dosage: NEBULISED; GIVEN ON ONE DAY
     Route: 055

REACTIONS (1)
  - LACTIC ACIDOSIS [None]
